FAERS Safety Report 7901705-8 (Version None)
Quarter: 2011Q4

REPORT INFORMATION
  Report Type: 
  Country: None (occurrence: None)
  Receive Date: 20111108
  Receipt Date: 20111025
  Transmission Date: 20120403
  Serious: Yes (Other)
  Sender: FDA-Public Use
  Company Number: US-ELI_LILLY_AND_COMPANY-US201011003847

PATIENT
  Sex: Female

DRUGS (1)
  1. FORTEO [Suspect]
     Indication: OSTEOPOROSIS
     Dosage: 20 UG, DAILY (1/D)
     Dates: start: 20100914

REACTIONS (10)
  - PITUITARY TUMOUR [None]
  - HOT FLUSH [None]
  - HYPERHIDROSIS [None]
  - ERYTHEMA [None]
  - TINNITUS [None]
  - ABNORMAL FAECES [None]
  - CONSTIPATION [None]
  - INJECTION SITE HAEMATOMA [None]
  - PALPITATIONS [None]
  - DIZZINESS [None]
